FAERS Safety Report 7449727-8 (Version None)
Quarter: 2011Q2

REPORT INFORMATION
  Report Type: 
  Country: None (occurrence: None)
  Receive Date: 20110502
  Receipt Date: 20110418
  Transmission Date: 20111010
  Serious: Yes (Other)
  Sender: FDA-Public Use
  Company Number: US-JNJFOC-20110408996

PATIENT
  Sex: Female

DRUGS (1)
  1. REMICADE [Suspect]
     Indication: PRODUCT USED FOR UNKNOWN INDICATION
     Dosage: THE PATIENT HAD BEEN ON REMICADE FOR 10 YEARS
     Route: 042

REACTIONS (1)
  - LYMPHOMA [None]
